FAERS Safety Report 9755297 (Version 1)
Quarter: 2013Q4

REPORT INFORMATION
  Report Type: Spontaneous
  Country: US (occurrence: US)
  Receive Date: 20131213
  Receipt Date: 20131213
  Transmission Date: 20140711
  Serious: No
  Sender: FDA-Public Use
  Company Number: US-GLAXOSMITHKLINE-A1015454A

PATIENT
  Age: 35 Year
  Sex: Male

DRUGS (1)
  1. NICODERM CQ CLEAR 14MG [Suspect]
     Indication: EX-TOBACCO USER
     Route: 062
     Dates: start: 20130117, end: 20130123

REACTIONS (7)
  - Nausea [Recovered/Resolved]
  - Disorientation [Recovered/Resolved]
  - Drug ineffective [Unknown]
  - Hyperhidrosis [Unknown]
  - Dizziness [Unknown]
  - Erectile dysfunction [Unknown]
  - Sexual dysfunction [Unknown]
